FAERS Safety Report 10965117 (Version 1)
Quarter: 2015Q1

REPORT INFORMATION
  Report Type: Report from Study
  Country: JP (occurrence: JP)
  Receive Date: 20150330
  Receipt Date: 20150330
  Transmission Date: 20150721
  Serious: Yes (Other)
  Sender: FDA-Public Use
  Company Number: JP-ROCHE-1555597

PATIENT
  Age: 64 Year
  Sex: Male

DRUGS (24)
  1. RIBAVIRIN. [Suspect]
     Active Substance: RIBAVIRIN
     Route: 048
     Dates: start: 20140826, end: 20141028
  2. PARIET [Concomitant]
     Active Substance: RABEPRAZOLE SODIUM
     Route: 050
  3. ALDACTONE [Concomitant]
     Active Substance: SPIRONOLACTONE
     Indication: CHRONIC HEPATITIS C
     Route: 048
  4. RIBAVIRIN. [Suspect]
     Active Substance: RIBAVIRIN
     Indication: CHRONIC HEPATITIS C
     Route: 048
     Dates: start: 20140520, end: 20140527
  5. PEG-INTERFERON ALFA 2A [Suspect]
     Active Substance: PEGINTERFERON ALFA-2A
     Route: 058
     Dates: start: 20140805, end: 20140812
  6. PEG-INTERFERON ALFA 2A [Suspect]
     Active Substance: PEGINTERFERON ALFA-2A
     Route: 058
     Dates: start: 20141104, end: 20141111
  7. SIMEPREVIR [Suspect]
     Active Substance: SIMEPREVIR
     Indication: CHRONIC HEPATITIS C
     Route: 048
     Dates: start: 20140520, end: 20140527
  8. SIMEPREVIR [Suspect]
     Active Substance: SIMEPREVIR
     Route: 048
     Dates: start: 20140805, end: 20140819
  9. PURSENNID [Concomitant]
     Active Substance: SENNOSIDES A AND B
     Route: 048
  10. RIBAVIRIN. [Suspect]
     Active Substance: RIBAVIRIN
     Route: 048
     Dates: start: 20140805, end: 20140819
  11. PEG-INTERFERON ALFA 2A [Suspect]
     Active Substance: PEGINTERFERON ALFA-2A
     Route: 058
     Dates: start: 20140826, end: 20141021
  12. SIMEPREVIR [Suspect]
     Active Substance: SIMEPREVIR
     Route: 048
     Dates: start: 20140826
  13. DAIKENCHUTO [Concomitant]
     Active Substance: HERBALS
  14. RIBAVIRIN. [Suspect]
     Active Substance: RIBAVIRIN
     Route: 048
     Dates: start: 20141125
  15. ANTEBATE [Concomitant]
     Active Substance: BETAMETHASONE DIPROPIONATE
     Route: 061
     Dates: start: 20140523
  16. PEG-INTERFERON ALFA 2A [Suspect]
     Active Substance: PEGINTERFERON ALFA-2A
     Indication: CHRONIC HEPATITIS C
     Route: 058
     Dates: start: 20140520, end: 20140523
  17. PEG-INTERFERON ALFA 2A [Suspect]
     Active Substance: PEGINTERFERON ALFA-2A
     Route: 058
     Dates: start: 20141125
  18. URSO (JAPAN) [Concomitant]
     Indication: CHRONIC HEPATITIS C
     Route: 048
  19. SIMEPREVIR [Suspect]
     Active Substance: SIMEPREVIR
     Route: 048
     Dates: start: 20140617, end: 20140729
  20. RIBAVIRIN. [Suspect]
     Active Substance: RIBAVIRIN
     Route: 048
     Dates: start: 20140617, end: 20140729
  21. PEG-INTERFERON ALFA 2A [Suspect]
     Active Substance: PEGINTERFERON ALFA-2A
     Route: 058
     Dates: start: 20140617, end: 20140722
  22. RIBAVIRIN. [Suspect]
     Active Substance: RIBAVIRIN
     Route: 048
     Dates: start: 20141104, end: 20141118
  23. LIVACT [Concomitant]
     Active Substance: AMINO ACIDS
     Dosage: 3 DOSES
     Route: 048
  24. LASIX [Concomitant]
     Active Substance: FUROSEMIDE
     Indication: CHRONIC HEPATITIS C
     Route: 048

REACTIONS (7)
  - Neutropenia [Recovered/Resolved]
  - Bronchitis [Recovered/Resolved]
  - Malaise [Recovered/Resolved]
  - Decreased appetite [Recovered/Resolved]
  - Anaemia [Recovered/Resolved]
  - Dizziness [Recovered/Resolved]
  - Leukopenia [Recovered/Resolved]

NARRATIVE: CASE EVENT DATE: 20140523
